FAERS Safety Report 9924309 (Version 2)
Quarter: 2014Q1

REPORT INFORMATION
  Report Type: Report from Study
  Country: JP (occurrence: JP)
  Receive Date: 20140226
  Receipt Date: 20140226
  Transmission Date: 20141002
  Serious: Yes (Other)
  Sender: FDA-Public Use
  Company Number: JP-ACCORD-022065

PATIENT
  Sex: 0

DRUGS (4)
  1. ETOPOSIDE [Suspect]
     Indication: DIFFUSE LARGE B-CELL LYMPHOMA
     Dosage: 500 MG/M2 ON DAYS -6 TO -4
  2. CYCLOPHOSPHAMIDE [Suspect]
     Indication: DIFFUSE LARGE B-CELL LYMPHOMA
     Dosage: HIGH DOSE
  3. RANIMUSTINE [Suspect]
     Indication: DIFFUSE LARGE B-CELL LYMPHOMA
     Dosage: HIGH DOSE
  4. MESNA [Concomitant]
     Indication: DIFFUSE LARGE B-CELL LYMPHOMA
     Dosage: 0, 4, 8 H AFTER?COMPLETION OF CYCLOPHOSPHAMIDEADMINISTRATION ON DAYS-7 AND -6
     Route: 042

REACTIONS (1)
  - Myelodysplastic syndrome [Unknown]
